FAERS Safety Report 11277482 (Version 1)
Quarter: 2015Q3

REPORT INFORMATION
  Report Type: Spontaneous
  Country: JP (occurrence: JP)
  Receive Date: 20150716
  Receipt Date: 20150716
  Transmission Date: 20151125
  Serious: Yes (Hospitalization, Other)
  Sender: FDA-Public Use
  Company Number: JP-OTSUKA-02100-JPN-04-0198

PATIENT

DRUGS (3)
  1. MAGNESIUM OXIDE. [Concomitant]
     Active Substance: MAGNESIUM OXIDE
     Indication: CONSTIPATION
     Dosage: 0.5 G, TID
     Route: 048
     Dates: start: 20030119
  2. PLETAAL TABLETS 100MG [Suspect]
     Active Substance: CILOSTAZOL
     Indication: VENTRICULAR FIBRILLATION
     Dosage: 100 MG, BID
     Route: 048
     Dates: start: 20030123, end: 20030209
  3. RIZE [Concomitant]
     Active Substance: CLOTIAZEPAM
     Indication: VENTRICULAR FIBRILLATION
     Dosage: 5 MG, BID
     Route: 048
     Dates: start: 20030116, end: 20030212

REACTIONS (2)
  - Electrocardiogram QT prolonged [Recovering/Resolving]
  - Ventricular fibrillation [Recovering/Resolving]

NARRATIVE: CASE EVENT DATE: 20030207
